FAERS Safety Report 5231697-4 (Version None)
Quarter: 2007Q1

REPORT INFORMATION
  Report Type: 
  Country: None (occurrence: None)
  Receive Date: 20070206
  Receipt Date: 20070205
  Transmission Date: 20070707
  Serious: Yes (Hospitalization, Other)
  Sender: FDA-Public Use
  Company Number: US-PFIZER INC-2006114557

PATIENT
  Sex: Male
  Weight: 72.6 kg

DRUGS (12)
  1. CHANTIX [Suspect]
     Indication: SMOKING CESSATION THERAPY
     Dosage: TEXT:DAILY
     Dates: start: 20060920, end: 20060921
  2. CHANTIX [Suspect]
     Indication: PERIPHERAL VASCULAR DISORDER
  3. ATARAX [Suspect]
  4. BIAXIN [Concomitant]
  5. PREVACID [Concomitant]
  6. PLETAL [Concomitant]
  7. OXYCODONE HCL [Concomitant]
  8. FUROSEMIDE [Concomitant]
  9. XANAX [Concomitant]
  10. NORCO [Concomitant]
  11. EFFEXOR XR [Concomitant]
  12. AMBIEN [Concomitant]

REACTIONS (4)
  - MIGRAINE [None]
  - MYOCARDIAL INFARCTION [None]
  - SMOKER [None]
  - SOMNOLENCE [None]
